FAERS Safety Report 9465113 (Version 1)
Quarter: 2013Q3

REPORT INFORMATION
  Report Type: Report from Study
  Country: US (occurrence: US)
  Receive Date: 20130819
  Receipt Date: 20130819
  Transmission Date: 20140515
  Serious: Yes (Hospitalization, Disabling)
  Sender: FDA-Public Use
  Company Number: US-US-EMD SERONO, INC.-7231065

PATIENT
  Age: 44 Year
  Sex: Female
  Weight: 81 kg

DRUGS (1)
  1. REBIF [Suspect]
     Indication: MULTIPLE SCLEROSIS
     Route: 058
     Dates: start: 20120801

REACTIONS (5)
  - Gait disturbance [Recovering/Resolving]
  - Fall [Unknown]
  - Multiple sclerosis relapse [Unknown]
  - Blood glucose increased [Unknown]
  - Injection site erythema [Not Recovered/Not Resolved]
